FAERS Safety Report 5919421-0 (Version None)
Quarter: 2008Q4

REPORT INFORMATION
  Report Type: 
  Country: None (occurrence: None)
  Receive Date: 20081015
  Receipt Date: 20081008
  Transmission Date: 20090506
  Serious: Yes (Other)
  Sender: FDA-Public Use
  Company Number: PHEH2008US09028

PATIENT
  Sex: Male

DRUGS (2)
  1. EXELON [Suspect]
     Dosage: 1 PATCH DAILY
     Route: 062
  2. EXELON [Suspect]
     Dosage: 4 PATCHES
     Dates: start: 20081008, end: 20081008

REACTIONS (6)
  - CONFUSIONAL STATE [None]
  - DYSARTHRIA [None]
  - DYSKINESIA [None]
  - GAIT DISTURBANCE [None]
  - MEDICATION ERROR [None]
  - TREMOR [None]
